FAERS Safety Report 12626880 (Version 6)
Quarter: 2017Q3

REPORT INFORMATION
  Report Type: Spontaneous
  Country: DE (occurrence: DE)
  Receive Date: 20160805
  Receipt Date: 20170707
  Transmission Date: 20171127
  Serious: Yes (Death, Other)
  Sender: FDA-Public Use
  Company Number: DE-TAKEDA-2016TUS013561

PATIENT
  Age: 67 Year
  Sex: Female
  Weight: 71 kg

DRUGS (12)
  1. PREDNISONE. [Concomitant]
     Active Substance: PREDNISONE
     Indication: COLITIS ULCERATIVE
     Dosage: 20 MG, UNK
  2. BISOPROLOL [Concomitant]
     Active Substance: BISOPROLOL
     Dosage: UNK
  3. PANTOPRAZOLE [Concomitant]
     Active Substance: PANTOPRAZOLE
     Dosage: UNK
     Dates: start: 20160627
  4. RAMIPRIL. [Concomitant]
     Active Substance: RAMIPRIL
     Dosage: UNK
  5. MESALAMINE. [Concomitant]
     Active Substance: MESALAMINE
     Dosage: UNK
  6. AGOMELATINE [Concomitant]
     Active Substance: AGOMELATINE
     Dosage: UNK
  7. MIRTAZEPINE TEVA [Concomitant]
     Active Substance: MIRTAZAPINE
     Dosage: UNK
  8. ACETYLSALICYLIC ACID [Concomitant]
     Active Substance: ASPIRIN
     Dosage: UNK
  9. NOVAMINSULFON [Concomitant]
     Active Substance: METAMIZOLE
     Dosage: UNK
  10. ENTYVIO [Suspect]
     Active Substance: VEDOLIZUMAB
     Indication: COLITIS ULCERATIVE
     Dosage: 300 MG, UNK
     Route: 042
     Dates: start: 20160607, end: 20160620
  11. TILIDINE [Concomitant]
     Active Substance: TILIDINE
     Dosage: UNK
  12. ZOLPIDEM [Concomitant]
     Active Substance: ZOLPIDEM\ZOLPIDEM TARTRATE
     Dosage: UNK

REACTIONS (6)
  - Ileus paralytic [Fatal]
  - Sepsis [Fatal]
  - Gastrointestinal necrosis [Fatal]
  - Vasculitis [Fatal]
  - Liver disorder [Fatal]
  - Enteritis [Fatal]

NARRATIVE: CASE EVENT DATE: 20160629
